FAERS Safety Report 8742487 (Version 2)
Quarter: 2012Q4

REPORT INFORMATION
  Report Type: 
  Country: IT (occurrence: IT)
  Receive Date: 20120824
  Receipt Date: 20120918
  Transmission Date: 20130627
  Serious: Yes (Hospitalization, Other)
  Sender: FDA-Public Use
  Company Number: IT-BRISTOL-MYERS SQUIBB COMPANY-16855603

PATIENT
  Age: 82 Year
  Sex: Female

DRUGS (5)
  1. COUMADIN TABS 5 MG [Suspect]
     Indication: ATRIAL FIBRILLATION
     Dosage: 1 df:Coumadin 5 mg
     Route: 048
     Dates: start: 20110801, end: 20120811
  2. CARDIOASPIRIN [Suspect]
  3. CLOPIDOGREL BISULFATE [Suspect]
  4. VENITRIN [Concomitant]
  5. ALTIAZEM [Concomitant]

REACTIONS (4)
  - Haematoma [Recovered/Resolved]
  - Hypocoagulable state [Recovered/Resolved]
  - Anaemia [Recovered/Resolved]
  - Injury [Recovered/Resolved]
